FAERS Safety Report 26109797 (Version 1)
Quarter: 2025Q4

REPORT INFORMATION
  Report Type: Spontaneous
  Country: US (occurrence: US)
  Receive Date: 20251201
  Receipt Date: 20251201
  Transmission Date: 20260117
  Serious: No
  Sender: CHIMERIX
  Company Number: US-CHIMERIX-US-CHI-25-000416

PATIENT
  Sex: Male

DRUGS (1)
  1. MODEYSO [Suspect]
     Active Substance: DORDAVIPRONE
     Indication: Brain stem glioma
     Dosage: 625 MILLIGRAM, WEEKLY

REACTIONS (2)
  - Product storage error [Unknown]
  - Product temperature excursion issue [Unknown]
